FAERS Safety Report 18702276 (Version 1)
Quarter: 2021Q1

REPORT INFORMATION
  Report Type: Spontaneous
  Country: US (occurrence: US)
  Receive Date: 20210105
  Receipt Date: 20210105
  Transmission Date: 20210419
  Serious: Yes (Hospitalization)
  Sender: FDA-Public Use
  Company Number: US-PACIRA-2020000563

PATIENT

DRUGS (3)
  1. EXPAREL [Suspect]
     Active Substance: BUPIVACAINE
     Indication: NERVE BLOCK
     Dosage: TOTAL VOLUME 80 ML OF LB (20 ML/BOTTLE, DILUTED WITH 60 ML OF NORMAL SALINE; 4?20 ML SYRINGES)
     Route: 050
  2. ACETAMINOPHEN. [Concomitant]
     Active Substance: ACETAMINOPHEN
     Indication: PERIOPERATIVE ANALGESIA
     Dosage: SINGLE, INTRAOPERATIVE DOSE OF ACETAMINOPHEN 1,000 MG
     Route: 042
  3. KETOROLAC [Concomitant]
     Active Substance: KETOROLAC TROMETHAMINE
     Indication: PERIOPERATIVE ANALGESIA
     Dosage: SINGLE, INTRAOPERATIVE DOSE OF KETOROLAC, 30 MG
     Route: 042

REACTIONS (2)
  - Post procedural stroke [Unknown]
  - Off label use [Unknown]
